FAERS Safety Report 8303924-8 (Version None)
Quarter: 2012Q2

REPORT INFORMATION
  Report Type: 
  Country: None (occurrence: None)
  Receive Date: 20120423
  Receipt Date: 20120418
  Transmission Date: 20120825
  Serious: Yes (Death)
  Sender: FDA-Public Use
  Company Number: PHHY2012BR033504

PATIENT
  Sex: Male

DRUGS (5)
  1. ACETYLSALICYLIC ACID SRT [Concomitant]
  2. DIOVAN [Suspect]
     Dosage: 160 MG TO 320 MG, DAILY
  3. HYDROCHLOROTHIAZIDE [Concomitant]
  4. DIOVAN [Suspect]
     Indication: HYPERTENSION
     Dosage: 80MG TO 160 MG, DAILY
  5. SIMVASTATIN [Concomitant]

REACTIONS (2)
  - INFECTION [None]
  - EMPHYSEMA [None]
